FAERS Safety Report 18344047 (Version 2)
Quarter: 2020Q4

REPORT INFORMATION
  Report Type: Report from Study
  Country: AT (occurrence: AT)
  Receive Date: 20201005
  Receipt Date: 20201020
  Transmission Date: 20210114
  Serious: Yes (Other)
  Sender: FDA-Public Use
  Company Number: AT-MYLANLABS-2020M1082998

PATIENT
  Sex: Female
  Weight: 69 kg

DRUGS (5)
  1. FULVESTRANT. [Suspect]
     Active Substance: FULVESTRANT
     Indication: BREAST CANCER METASTATIC
     Dosage: 500 MG, QMO (EVERY 28 DAYS IN CYCLE IN ADDITION ON DAY 25)
     Route: 030
     Dates: start: 20190919
  2. RIBOCICLIB. [Suspect]
     Active Substance: RIBOCICLIB
     Dosage: UNK
     Route: 048
  3. RIBOCICLIB. [Suspect]
     Active Substance: RIBOCICLIB
     Indication: BREAST CANCER METASTATIC
     Dosage: 600 MILLIGRAM, QD (600 MG, QD)
     Route: 065
     Dates: start: 20190919
  4. RIBOCICLIB. [Suspect]
     Active Substance: RIBOCICLIB
     Dosage: 400 UNK
     Route: 065
     Dates: start: 20200122, end: 202005
  5. RIBOCICLIB. [Suspect]
     Active Substance: RIBOCICLIB
     Dosage: UNK
     Route: 065
     Dates: start: 20191003

REACTIONS (6)
  - Muscle spasms [Recovered/Resolved]
  - Stomatitis [Recovered/Resolved]
  - Fatigue [Recovered/Resolved]
  - Alopecia [Not Recovered/Not Resolved]
  - Dyspnoea [Recovered/Resolved]
  - Neutropenia [Recovered/Resolved]

NARRATIVE: CASE EVENT DATE: 20191003
